FAERS Safety Report 6283384-1 (Version None)
Quarter: 2009Q3

REPORT INFORMATION
  Report Type: 
  Country: None (occurrence: None)
  Receive Date: 20090724
  Receipt Date: 20090120
  Transmission Date: 20100115
  Serious: No
  Sender: FDA-Public Use
  Company Number: US-AMGEN-KDL329586

PATIENT
  Sex: Male
  Weight: 69.5 kg

DRUGS (10)
  1. PROCRIT [Suspect]
     Indication: PRE-EXISTING DISEASE
     Dates: start: 20070801, end: 20080201
  2. NEUPOGEN [Suspect]
     Indication: NEUTROPENIA
     Dates: start: 20070801, end: 20080201
  3. RIBAVIRIN [Concomitant]
  4. PEGASYS [Concomitant]
  5. ATAZANAVIR SULFATE [Concomitant]
     Dates: start: 20010101
  6. NORVIR [Concomitant]
  7. TRUVADA [Concomitant]
  8. PROVIGIL [Concomitant]
  9. TESTOSTERONE [Concomitant]
  10. UNSPECIFIED MEDICATION [Concomitant]

REACTIONS (11)
  - ASTHENIA [None]
  - BONE PAIN [None]
  - DIARRHOEA [None]
  - DYSPNOEA [None]
  - FATIGUE [None]
  - HYPERAESTHESIA [None]
  - JOINT SWELLING [None]
  - NAUSEA [None]
  - PYREXIA [None]
  - UPPER RESPIRATORY TRACT INFECTION [None]
  - WHITE BLOOD CELL COUNT DECREASED [None]
